FAERS Safety Report 5692732-2 (Version None)
Quarter: 2008Q2

REPORT INFORMATION
  Report Type: 
  Country: None (occurrence: None)
  Receive Date: 20080401
  Receipt Date: 20080322
  Transmission Date: 20081010
  Serious: Yes (Hospitalization)
  Sender: FDA-Public Use
  Company Number: 163-20785-08031451

PATIENT
  Age: 84 Year
  Sex: Male

DRUGS (1)
  1. THALOMID [Suspect]
     Indication: MULTIPLE MYELOMA
     Dosage: 150 MG, DAILY, ORAL
     Route: 048
     Dates: start: 20070131

REACTIONS (2)
  - NECK MASS [None]
  - TOOTH ABSCESS [None]
